FAERS Safety Report 6336801-2 (Version None)
Quarter: 2009Q3

REPORT INFORMATION
  Report Type: 
  Country: None (occurrence: None)
  Receive Date: 20090901
  Receipt Date: 20090819
  Transmission Date: 20100115
  Serious: Yes (Hospitalization, Other)
  Sender: FDA-Public Use
  Company Number: US-ROCHE-616089

PATIENT
  Sex: Male
  Weight: 80 kg

DRUGS (7)
  1. PEG-INTERFERON ALFA 2A (RO 25-8310) [Suspect]
     Dosage: PERMANENTLY DISCONTINUED.
     Route: 065
  2. RIBAVIRIN [Suspect]
     Dosage: PERMANENTLY DISCONTINUED.
     Route: 065
  3. BLINDED NITAZOXANIDE [Suspect]
     Dosage: PERMANENTLY STOPPED.
     Route: 065
     Dates: start: 20080714, end: 20090203
  4. CEFTRIAXONE SODIUM [Concomitant]
     Route: 042
  5. LEXAPRO [Concomitant]
  6. FLAGYL [Concomitant]
     Route: 042
  7. PANTOPRAZOLE SODIUM [Concomitant]

REACTIONS (3)
  - OVERDOSE [None]
  - PULMONARY HAEMORRHAGE [None]
  - SYNCOPE [None]
